FAERS Safety Report 9025012 (Version 1)
Quarter: 2013Q1

REPORT INFORMATION
  Report Type: Spontaneous
  Country: JP (occurrence: JP)
  Receive Date: 20130121
  Receipt Date: 20130121
  Transmission Date: 20140127
  Serious: Yes (Other)
  Sender: FDA-Public Use
  Company Number: PHHY2013JP004301

PATIENT
  Age: 56 None
  Sex: Female

DRUGS (27)
  1. BASILIXIMAB [Suspect]
     Indication: PROPHYLAXIS AGAINST TRANSPLANT REJECTION
     Dosage: 20 MG, UNK
     Route: 042
     Dates: start: 20040623, end: 20040627
  2. CELLCEPT [Suspect]
     Indication: PROPHYLAXIS AGAINST TRANSPLANT REJECTION
     Dosage: 2000 MG, UNK
     Route: 048
     Dates: start: 20040624
  3. CELLCEPT [Suspect]
     Dosage: 1500 MG, UNK
     Route: 048
     Dates: start: 20040628
  4. CELLCEPT [Suspect]
     Dosage: 1000 MG, UNK
     Route: 048
  5. CELLCEPT [Suspect]
     Dosage: 750 MG, UNK
     Route: 048
     Dates: start: 20040706
  6. CELLCEPT [Suspect]
     Dosage: 250 MG, UNK
     Route: 048
  7. CELLCEPT [Suspect]
     Dosage: 500 MG, UNK
     Route: 048
     Dates: start: 20040724
  8. CELLCEPT [Suspect]
     Dosage: 1000 MG, UNK
     Route: 048
  9. CELLCEPT [Suspect]
     Dosage: 500 MG, UNK
     Route: 048
     Dates: start: 20040727
  10. CELLCEPT [Suspect]
     Dosage: 1000 MG, UNK
     Route: 048
  11. CELLCEPT [Suspect]
     Dosage: 750 MG, UNK
     Route: 048
     Dates: start: 20040727
  12. CELLCEPT [Suspect]
     Dosage: 500 MG, UNK
     Route: 048
     Dates: end: 20040730
  13. FLOMOXEF SODIUM [Suspect]
     Indication: PROPHYLAXIS AGAINST TRANSPLANT REJECTION
     Dosage: 2 G, UNK
     Route: 042
     Dates: start: 20040624, end: 20040626
  14. NEORAL [Concomitant]
     Indication: PROPHYLAXIS
     Dosage: 1000 MG, UNK
     Route: 048
     Dates: start: 20040624
  15. BAKTAR [Concomitant]
     Indication: PROPHYLAXIS
     Dosage: 1 DF, 3 IN WEEK
     Dates: start: 20040625, end: 20040803
  16. URSO [Concomitant]
     Indication: PROPHYLAXIS
     Dosage: 600 MG, UNK
     Route: 048
     Dates: start: 20040624
  17. OMEPRAL [Concomitant]
     Indication: PROPHYLAXIS
     Dosage: 1 DF, UNK
     Route: 042
     Dates: start: 20040624, end: 20040630
  18. DALACIN [Concomitant]
     Indication: PROPHYLAXIS
     Dosage: 1200 MG, UNK
     Route: 042
     Dates: start: 20040624, end: 20040626
  19. DALACIN [Concomitant]
     Dosage: 1200 MG, UNK
     Route: 042
     Dates: start: 20040627, end: 20040803
  20. FUNGUARD [Concomitant]
     Indication: PROPHYLAXIS
     Dosage: 75 MG, UNK
     Route: 042
     Dates: start: 20040624, end: 20040707
  21. FUNGUARD [Concomitant]
     Dosage: 75 MG, UNK
     Route: 042
     Dates: start: 20040727, end: 20040803
  22. LASIX [Concomitant]
     Indication: PROPHYLAXIS
     Dosage: 20 MG, UNK
     Route: 048
     Dates: start: 20040624, end: 20040701
  23. LASIX [Concomitant]
     Dosage: 40 MG, UNK
     Route: 048
     Dates: start: 20040721, end: 20050207
  24. PARIET [Concomitant]
     Indication: PROPHYLAXIS
     Dosage: 1 DF, UNK
     Route: 048
     Dates: start: 20040701, end: 20040816
  25. DENOSINE [Concomitant]
     Indication: PROPHYLAXIS
     Dosage: 400 MG, UNK
     Route: 042
     Dates: start: 20040628, end: 20040703
  26. DOGMATYL [Concomitant]
     Indication: PROPHYLAXIS
     Dosage: 3 DF, UNK
     Route: 048
     Dates: start: 20040709, end: 20040811
  27. CIPROXAN [Concomitant]
     Indication: PROPHYLAXIS
     Dosage: 600 MG, UNK
     Route: 042
     Dates: start: 20040727, end: 20040803

REACTIONS (3)
  - Hepatic failure [Recovered/Resolved]
  - Pleural effusion [Recovering/Resolving]
  - Ascites [Recovering/Resolving]
